FAERS Safety Report 19704599 (Version 1)
Quarter: 2021Q3

REPORT INFORMATION
  Report Type: Report from Study
  Country: US (occurrence: US)
  Receive Date: 20210816
  Receipt Date: 20210816
  Transmission Date: 20211014
  Serious: Yes (Other)
  Sender: FDA-Public Use
  Company Number: US-MYLANLABS-2019M1107430

PATIENT
  Age: 64 Year
  Sex: Female
  Weight: 60.78 kg

DRUGS (3)
  1. ATORVASTATIN [Concomitant]
     Active Substance: ATORVASTATIN
     Indication: BLOOD CHOLESTEROL INCREASED
     Dosage: 40 MILLIGRAM, QD
  2. METOPROLOL. [Concomitant]
     Active Substance: METOPROLOL
     Indication: HEART RATE IRREGULAR
     Dosage: 25 MILLIGRAM, QD
  3. GLATIRAMER ACETATE INJECTION [Suspect]
     Active Substance: GLATIRAMER ACETATE
     Indication: RELAPSING-REMITTING MULTIPLE SCLEROSIS
     Dosage: 20 MILLIGRAM, QD
     Route: 058
     Dates: start: 2019, end: 20201217

REACTIONS (26)
  - Throat tightness [Unknown]
  - Nausea [Unknown]
  - Anxiety [Unknown]
  - Cough [Recovered/Resolved]
  - Dyspnoea [Unknown]
  - Injection site erythema [Recovering/Resolving]
  - Chest pain [Recovered/Resolved]
  - Diarrhoea [Unknown]
  - Flushing [Unknown]
  - Injection site bruising [Unknown]
  - Body temperature increased [Unknown]
  - Palpitations [Unknown]
  - Back pain [Unknown]
  - Injection site inflammation [Unknown]
  - Hot flush [Unknown]
  - Chills [Unknown]
  - Skin necrosis [Unknown]
  - Myalgia [Unknown]
  - Injection site pain [Unknown]
  - Pain in extremity [Unknown]
  - Muscle spasms [Recovered/Resolved]
  - Influenza like illness [Unknown]
  - Nervousness [Recovered/Resolved]
  - Tremor [Recovered/Resolved]
  - Rash [Recovered/Resolved]
  - Lipoatrophy [Unknown]

NARRATIVE: CASE EVENT DATE: 2020
